FAERS Safety Report 17254816 (Version 1)
Quarter: 2020Q1

REPORT INFORMATION
  Report Type: Report from Study
  Country: US (occurrence: US)
  Receive Date: 20200109
  Receipt Date: 20200109
  Transmission Date: 20200409
  Serious: Yes (Hospitalization)
  Sender: FDA-Public Use
  Company Number: US-EXELIXIS-CABO-19023804

PATIENT
  Sex: Female

DRUGS (26)
  1. LANTUS XR [Concomitant]
     Active Substance: INSULIN GLARGINE
  2. NOVOLOG [Concomitant]
     Active Substance: INSULIN ASPART
  3. VITAMIN D [Concomitant]
     Active Substance: VITAMIN D NOS
  4. CABOMETYX [Suspect]
     Active Substance: CABOZANTINIB S-MALATE
     Indication: RENAL DISORDER
     Dosage: 40 MG, QD (1 HOUR BEFORE OR 2 HOURS AFTER A MEAL)
     Route: 048
  5. CABOMETYX [Suspect]
     Active Substance: CABOZANTINIB S-MALATE
     Dosage: 40 MG, QOD (1 HOUR BEFOR OR 2 HOURS AFTER MEAL)
     Route: 048
  6. CALCIUM [Concomitant]
     Active Substance: CALCIUM
  7. MULTIVITAMINS [Concomitant]
     Active Substance: VITAMINS
  8. SIMVASTATIN. [Concomitant]
     Active Substance: SIMVASTATIN
  9. CABOMETYX [Suspect]
     Active Substance: CABOZANTINIB S-MALATE
     Indication: RENAL CANCER
     Dosage: 60 MG, QD (1 HOUR BEFORE OR 2 HOURS AFTER A MEAL)
     Route: 048
     Dates: start: 201803
  10. ROLAIDS [Concomitant]
     Active Substance: CALCIUM CARBONATE\MAGNESIUM HYDROXIDE
  11. FUROSEMIDE. [Concomitant]
     Active Substance: FUROSEMIDE
  12. QUETIAPINE. [Concomitant]
     Active Substance: QUETIAPINE
  13. FLUOXETINE [Concomitant]
     Active Substance: FLUOXETINE HYDROCHLORIDE
  14. OMEPRAZOLE. [Concomitant]
     Active Substance: OMEPRAZOLE
  15. VITAMIN C [Concomitant]
     Active Substance: ASCORBIC ACID
  16. CABOMETYX [Suspect]
     Active Substance: CABOZANTINIB S-MALATE
     Dosage: 40 MG, QD (1 HOUR BEFORE OR 2 HOURS AFTER A MEAL)
     Route: 048
  17. AMLODIPINE [Concomitant]
     Active Substance: AMLODIPINE BESYLATE
  18. PREDNISONE. [Concomitant]
     Active Substance: PREDNISONE
  19. TUMS CHEWIES [Concomitant]
  20. CABOMETYX [Suspect]
     Active Substance: CABOZANTINIB S-MALATE
     Dosage: 40 MG, QOD (1 HOUR BEFOR OR 2 HOURS AFTER MEAL)
     Route: 048
  21. INVEGA [Concomitant]
     Active Substance: PALIPERIDONE
  22. METFORMIN [Concomitant]
     Active Substance: METFORMIN HYDROCHLORIDE
  23. POTASSIUM [Concomitant]
     Active Substance: POTASSIUM
  24. RAMIPRIL. [Concomitant]
     Active Substance: RAMIPRIL
  25. IRON [Concomitant]
     Active Substance: IRON
  26. PIOGLITAZONE HCL [Concomitant]
     Active Substance: PIOGLITAZONE

REACTIONS (13)
  - Diarrhoea [Not Recovered/Not Resolved]
  - Rectal haemorrhage [Not Recovered/Not Resolved]
  - Fatigue [Not Recovered/Not Resolved]
  - Oral pain [Not Recovered/Not Resolved]
  - Dehydration [Not Recovered/Not Resolved]
  - Anorectal infection bacterial [Not Recovered/Not Resolved]
  - Oxygen saturation decreased [Not Recovered/Not Resolved]
  - Taste disorder [Not Recovered/Not Resolved]
  - Weight decreased [Not Recovered/Not Resolved]
  - Arthralgia [Not Recovered/Not Resolved]
  - Hallucination [Not Recovered/Not Resolved]
  - Blood sodium decreased [Not Recovered/Not Resolved]
  - Product dose omission [Unknown]
